FAERS Safety Report 14842746 (Version 1)
Quarter: 2018Q2

REPORT INFORMATION
  Report Type: Spontaneous
  Country: DE (occurrence: DE)
  Receive Date: 20180503
  Receipt Date: 20180503
  Transmission Date: 20180711
  Serious: Yes (Hospitalization)
  Sender: FDA-Public Use
  Company Number: PHHY2017DE202788

PATIENT
  Age: 65 Year
  Sex: Male
  Weight: 75 kg

DRUGS (9)
  1. ABRAXANE [Suspect]
     Active Substance: PACLITAXEL
     Indication: NON-SMALL CELL LUNG CANCER
     Dosage: 100 MG/M2, UNK
     Route: 041
  2. VITAMIN B12 [Concomitant]
     Active Substance: CYANOCOBALAMIN
     Indication: PROPHYLAXIS
     Dosage: 1000 UG, UNK
     Route: 048
  3. METOCLOPRAMID [Concomitant]
     Active Substance: METOCLOPRAMIDE
     Indication: PROPHYLAXIS
     Dosage: 1 MG, UNK
     Route: 048
  4. FORMATRIS [Concomitant]
     Active Substance: FORMOTEROL FUMARATE
     Indication: CHRONIC OBSTRUCTIVE PULMONARY DISEASE
     Dosage: 2 UG, QD
     Route: 065
  5. DEXAMETHASONE. [Concomitant]
     Active Substance: DEXAMETHASONE
     Indication: PROPHYLAXIS
     Dosage: 8 MG, QD
     Route: 041
     Dates: start: 20170829, end: 20171102
  6. CARBOPLATIN. [Suspect]
     Active Substance: CARBOPLATIN
     Indication: NON-SMALL CELL LUNG CANCER
     Dosage: MGXMIN/ML
     Route: 041
  7. LAMOTRIGIN [Concomitant]
     Active Substance: LAMOTRIGINE
     Indication: EPILEPSY
     Dosage: 300 MG, QD
     Route: 048
  8. ALLOPURINOL. [Concomitant]
     Active Substance: ALLOPURINOL
     Indication: HYPERURICAEMIA
     Dosage: 100 MG, QD
     Route: 048
  9. PARACODEINE [Concomitant]
     Indication: COUGH
     Dosage: 20 MG, UNK
     Route: 048

REACTIONS (3)
  - Leukopenia [Recovered/Resolved]
  - Anaemia [Recovering/Resolving]
  - Pleural effusion [Recovering/Resolving]

NARRATIVE: CASE EVENT DATE: 20171025
